FAERS Safety Report 4705964-4 (Version None)
Quarter: 2005Q2

REPORT INFORMATION
  Report Type: 
  Country: None (occurrence: None)
  Receive Date: 20050629
  Receipt Date: 20050617
  Transmission Date: 20051028
  Serious: Yes (Other)
  Sender: FDA-Public Use
  Company Number: 2005090398

PATIENT
  Age: 25 Year
  Sex: Male
  Weight: 90.7194 kg

DRUGS (3)
  1. ROGAINE [Suspect]
     Indication: ALOPECIA
     Dosage: 1 ML BID, TOPICAL
     Route: 061
     Dates: start: 20050301
  2. DEXMETHYLPHENIDATE 1 M HYDROCHLORIDE (DEXMETHYLPHENIDATE HYDROCHLORIDE [Concomitant]
  3. ALBUTEROL SULFATE HFA [Concomitant]

REACTIONS (2)
  - HYPERTENSION [None]
  - POLYCYTHAEMIA [None]
